FAERS Safety Report 9025726 (Version 1)
Quarter: 2013Q1

REPORT INFORMATION
  Report Type: Spontaneous
  Country: US (occurrence: US)
  Receive Date: 20130123
  Receipt Date: 20130123
  Transmission Date: 20140127
  Serious: No
  Sender: FDA-Public Use
  Company Number: US-BIOGENIDEC-2013BI004079

PATIENT
  Sex: Female

DRUGS (2)
  1. TYSABRI [Suspect]
     Indication: MULTIPLE SCLEROSIS
     Route: 042
     Dates: start: 20120502, end: 20120530
  2. AVONEX [Concomitant]
     Indication: MULTIPLE SCLEROSIS
     Route: 030
     Dates: start: 20120917

REACTIONS (5)
  - Memory impairment [Recovered/Resolved]
  - Thinking abnormal [Recovered/Resolved]
  - Gait disturbance [Unknown]
  - Speech disorder [Unknown]
  - Confusional state [Recovered/Resolved]
